FAERS Safety Report 4698911-5 (Version None)
Quarter: 2005Q2

REPORT INFORMATION
  Report Type: 
  Country: None (occurrence: None)
  Receive Date: 20050622
  Receipt Date: 20050622
  Transmission Date: 20051028
  Serious: Yes (Other)
  Sender: FDA-Public Use
  Company Number: None

PATIENT
  Sex: Male
  Weight: 119 kg

DRUGS (4)
  1. L-ASPARGINASE [Suspect]
     Indication: ACUTE LYMPHOCYTIC LEUKAEMIA
     Dosage: 24,600 UNITS SC DAYS 2,5,8,12,15,19
     Route: 058
     Dates: start: 20041223, end: 20050110
  2. PREDNISONE 20MG PO TID X 28 DAYS [Suspect]
     Dosage: 20MG PO TID X 28 DAYS
     Route: 048
     Dates: start: 20041223, end: 20050113
  3. DAUNOMYCIN [Concomitant]
  4. VINCRISTINE [Concomitant]

REACTIONS (7)
  - ASPIRATION BONE MARROW ABNORMAL [None]
  - DEHYDRATION [None]
  - HEPATIC STEATOSIS [None]
  - HEPATOMEGALY [None]
  - JAUNDICE [None]
  - NAUSEA [None]
  - ORAL INTAKE REDUCED [None]
